FAERS Safety Report 7095368-4 (Version None)
Quarter: 2010Q4

REPORT INFORMATION
  Report Type: 
  Country: None (occurrence: None)
  Receive Date: 20101111
  Receipt Date: 20101105
  Transmission Date: 20110411
  Serious: Yes (Life-Threatening, Hospitalization)
  Sender: FDA-Public Use
  Company Number: JP-CELGENEUS-087-21880-10110864

PATIENT
  Age: 70 Year
  Sex: Female

DRUGS (2)
  1. REVLIMID [Suspect]
     Indication: MULTIPLE MYELOMA
     Route: 048
     Dates: start: 20101012, end: 20101028
  2. LENADEX [Suspect]
     Route: 065

REACTIONS (3)
  - HEPATIC ENCEPHALOPATHY [None]
  - NEUTROPENIA [None]
  - THROMBOCYTOPENIA [None]
